FAERS Safety Report 4371070-4 (Version None)
Quarter: 2004Q2

REPORT INFORMATION
  Report Type: 
  Country: None (occurrence: None)
  Receive Date: 20040604
  Receipt Date: 20030130
  Transmission Date: 20050107
  Serious: Yes (Hospitalization, Disabling, Other)
  Sender: FDA-Public Use
  Company Number: US-MERCK-0301USA03184

PATIENT
  Age: 94 Year
  Sex: Female
  Weight: 60 kg

DRUGS (14)
  1. ALBUTEROL [Concomitant]
     Route: 055
  2. ASPIRIN [Suspect]
     Route: 048
     Dates: end: 20011023
  3. CIPROFLOXACIN [Concomitant]
     Indication: URINARY TRACT INFECTION
     Route: 065
  4. CIPROFLOXACIN [Concomitant]
     Indication: CYSTITIS
     Route: 065
  5. HYZAAR [Concomitant]
     Route: 048
  6. DYAZIDE [Concomitant]
     Route: 065
  7. ISOSORBIDE [Concomitant]
     Route: 065
  8. ATIVAN [Concomitant]
     Route: 048
  9. NITROGLYCERIN [Concomitant]
     Indication: CHEST PAIN
     Route: 065
  10. OXYBUTYNIN [Concomitant]
     Route: 048
  11. PROPRANOLOL HYDROCHLORIDE [Concomitant]
     Route: 065
  12. QUININE [Concomitant]
     Indication: MUSCLE CRAMP
     Route: 065
  13. VIOXX [Suspect]
     Indication: OSTEOARTHRITIS
     Route: 048
     Dates: start: 20000101, end: 20011023
  14. VIOXX [Suspect]
     Indication: GASTROOESOPHAGEAL REFLUX DISEASE
     Route: 048
     Dates: start: 20000101, end: 20011023

REACTIONS (40)
  - ABDOMINAL PAIN UPPER [None]
  - AORTIC ANEURYSM [None]
  - ATELECTASIS [None]
  - BLOOD PRESSURE FLUCTUATION [None]
  - BRONCHITIS [None]
  - CARDIOMEGALY [None]
  - CATARACT [None]
  - CHEST PAIN [None]
  - CHRONIC OBSTRUCTIVE AIRWAYS DISEASE [None]
  - CHRONIC SINUSITIS [None]
  - COLON CANCER [None]
  - CORONARY ARTERY DISEASE [None]
  - DEEP VEIN THROMBOSIS [None]
  - DYSPEPSIA [None]
  - DYSPHAGIA [None]
  - DYSPNOEA [None]
  - ECCHYMOSIS [None]
  - EMOTIONAL DISTRESS [None]
  - ESSENTIAL TREMOR [None]
  - FAECES DISCOLOURED [None]
  - FIBROMYALGIA [None]
  - FLUID OVERLOAD [None]
  - GASTRIC ULCER HAEMORRHAGE [None]
  - GASTRITIS [None]
  - GASTROENTERITIS VIRAL [None]
  - GASTROINTESTINAL HAEMORRHAGE [None]
  - HYPERTENSION [None]
  - IRON DEFICIENCY ANAEMIA [None]
  - MYOCARDIAL INFARCTION [None]
  - OESOPHAGEAL PAIN [None]
  - OSTEOARTHRITIS [None]
  - OSTEOPOROSIS [None]
  - PYREXIA [None]
  - RENAL CYST [None]
  - RHEUMATIC FEVER [None]
  - RHINITIS ALLERGIC [None]
  - STRESS INCONTINENCE [None]
  - VENOUS STASIS [None]
  - VERTIGO [None]
  - WEIGHT DECREASED [None]
